FAERS Safety Report 17996331 (Version 5)
Quarter: 2021Q1

REPORT INFORMATION
  Report Type: Other
  Country: US (occurrence: US)
  Receive Date: 20200708
  Receipt Date: 20210208
  Transmission Date: 20210419
  Serious: No
  Sender: FDA-Public Use
  Company Number: US-AMAG PHARMACEUTICALS, INC.-AMAG202002187

PATIENT
  Age: 38 Year
  Sex: Female
  Weight: 72.64 kg

DRUGS (7)
  1. MAKENA [Suspect]
     Active Substance: HYDROXYPROGESTERONE CAPROATE
     Indication: PREMATURE DELIVERY
     Dosage: 250MG/ML, WEEKLY
     Route: 058
     Dates: start: 20200622
  2. PREVACID [Concomitant]
     Active Substance: LANSOPRAZOLE
     Route: 048
  3. CITRANATAL 90 DHA [Concomitant]
     Active Substance: ALPHA-TOCOPHEROL ACETATE\ASCORBIC ACID\CALCIUM CITRATE\CUPRIC OXIDE\DOCUSATE SODIUM\FOLIC ACID\IRON\NIACINAMIDE\POTASSIUM TRIIODIDE\PYRIDOXINE HYDROCHLORIDE\RIBOPRINE\THIAMINE\VITAMIN D\ZINC OXIDE
     Dosage: DISPENSE 30
     Route: 048
  4. UNISOM SLEEPTABS [Concomitant]
     Active Substance: DOXYLAMINE SUCCINATE
  5. BABY ASPIRIN [Concomitant]
     Active Substance: ASPIRIN
     Indication: PRE-ECLAMPSIA
  6. CITRANATAL [Concomitant]
     Dosage: DISPENSE 30
     Route: 048
  7. SERTRALINE [Concomitant]
     Active Substance: SERTRALINE HYDROCHLORIDE

REACTIONS (18)
  - Headache [Unknown]
  - Palpitations [Recovered/Resolved]
  - Diarrhoea [Unknown]
  - Dyspnoea [Unknown]
  - Dizziness [Recovered/Resolved]
  - Abdominal pain [Unknown]
  - Injection site pain [Recovered/Resolved]
  - Uterine contractions during pregnancy [Unknown]
  - Injection site rash [Not Recovered/Not Resolved]
  - Injection site pruritus [Not Recovered/Not Resolved]
  - Injection site mass [Not Recovered/Not Resolved]
  - Placental disorder [Unknown]
  - Amniorrhoea [Unknown]
  - Pruritus [Not Recovered/Not Resolved]
  - Injection site warmth [Not Recovered/Not Resolved]
  - Injection site erythema [Not Recovered/Not Resolved]
  - Limb injury [Unknown]
  - Injection site induration [Not Recovered/Not Resolved]

NARRATIVE: CASE EVENT DATE: 20200622
